FAERS Safety Report 4478081-9 (Version None)
Quarter: 2004Q3

REPORT INFORMATION
  Report Type: 
  Country: None (occurrence: None)
  Receive Date: 20040923
  Receipt Date: 20040818
  Transmission Date: 20050211
  Serious: Yes (Other)
  Sender: FDA-Public Use
  Company Number: US_0404102103

PATIENT
  Age: 69 Year
  Sex: Female
  Weight: 51 kg

DRUGS (4)
  1. EVISTA [Suspect]
     Dates: start: 20021201, end: 20040501
  2. FORTEO [Suspect]
     Indication: OSTEOPOROSIS
     Dosage: 20 UG DAY
     Dates: start: 20040511
  3. FOSAMAX [Concomitant]
  4. CALCIUM WITH VITAMIN D [Concomitant]

REACTIONS (6)
  - ANXIETY [None]
  - BONE DENSITY DECREASED [None]
  - INJECTION SITE ERYTHEMA [None]
  - INJECTION SITE HAEMORRHAGE [None]
  - INJECTION SITE PAIN [None]
  - RADIUS FRACTURE [None]
